FAERS Safety Report 13903000 (Version 1)
Quarter: 2017Q3

REPORT INFORMATION
  Report Type: Spontaneous
  Country: FR (occurrence: FR)
  Receive Date: 20170824
  Receipt Date: 20170824
  Transmission Date: 20171127
  Serious: Yes (Other)
  Sender: FDA-Public Use
  Company Number: FR-SA-2017SA155075

PATIENT
  Age: 59 Year
  Sex: Female

DRUGS (9)
  1. PLERIXAFOR [Suspect]
     Active Substance: PLERIXAFOR
     Indication: MANTLE CELL LYMPHOMA
     Route: 058
     Dates: start: 20160218, end: 20160218
  2. FORLAX [Concomitant]
     Active Substance: POLYETHYLENE GLYCOL 4000
     Route: 065
  3. AMLOR [Concomitant]
     Active Substance: AMLODIPINE BESYLATE
     Route: 065
  4. PLERIXAFOR [Suspect]
     Active Substance: PLERIXAFOR
     Indication: BLOOD STEM CELL HARVEST
     Route: 058
     Dates: start: 20160218, end: 20160218
  5. XAGRID [Concomitant]
     Active Substance: ANAGRELIDE HYDROCHLORIDE
     Dosage: DOSE: 0.5 ON EVEN DAYS
     Route: 065
  6. CALCIPARINE [Concomitant]
     Active Substance: HEPARIN CALCIUM
     Dosage: DOSE: 0.2
     Route: 065
  7. LOPRESSOR [Concomitant]
     Active Substance: METOPROLOL TARTRATE
     Dosage: DOSE: 1/2
     Route: 065
  8. UROREC [Concomitant]
     Active Substance: SILODOSIN
     Route: 065
  9. TAHOR [Concomitant]
     Active Substance: ATORVASTATIN CALCIUM
     Route: 065

REACTIONS (2)
  - Amnesia [Recovered/Resolved]
  - Anaphylactic shock [Recovered/Resolved]

NARRATIVE: CASE EVENT DATE: 20160218
